FAERS Safety Report 8370791-6 (Version None)
Quarter: 2012Q2

REPORT INFORMATION
  Report Type: 
  Country: None (occurrence: None)
  Receive Date: 20120518
  Receipt Date: 20120330
  Transmission Date: 20120825
  Serious: Yes (Other)
  Sender: FDA-Public Use
  Company Number: US-ALEXION-A201200577

PATIENT
  Sex: Male

DRUGS (4)
  1. DIURETICS [Suspect]
     Dosage: UNK
     Dates: end: 20120301
  2. TACROLIMUS [Suspect]
     Dosage: UNK
     Dates: end: 20120301
  3. SOLIRIS [Suspect]
     Dosage: 600 MG, Q2W
     Route: 042
     Dates: start: 20110101
  4. SOLIRIS [Suspect]
     Indication: HAEMOLYTIC URAEMIC SYNDROME
     Dosage: 600 MG, QW
     Route: 042
     Dates: start: 20111019, end: 20110101

REACTIONS (2)
  - RENAL FAILURE [None]
  - DRUG LEVEL INCREASED [None]
